FAERS Safety Report 9597113 (Version 2)
Quarter: 2013Q4

REPORT INFORMATION
  Report Type: Spontaneous
  Country: None (occurrence: US)
  Receive Date: 20131004
  Receipt Date: 20131004
  Transmission Date: 20140711
  Serious: Yes (Other)
  Sender: FDA-Public Use
  Company Number: US-ALLERGAN-1313578US

PATIENT
  Age: 77 Year
  Sex: Female

DRUGS (4)
  1. LATISSE 0.03% [Suspect]
     Indication: HAIR GROWTH ABNORMAL
     Dosage: 1 GTT, QHS
     Route: 061
  2. LORAZEPAM [Concomitant]
     Indication: SLEEP DISORDER
     Dosage: 0.5 MG, QHS
     Route: 048
  3. ATENOLOL [Concomitant]
     Indication: ARRHYTHMIA
  4. ERYTHROMYCIN EYE OINTMENT NOS [Concomitant]
     Indication: PRODUCT USED FOR UNKNOWN INDICATION
     Dosage: UNK, PRN

REACTIONS (12)
  - Throat tightness [Recovering/Resolving]
  - Drug hypersensitivity [Unknown]
  - Blood pressure systolic increased [Recovering/Resolving]
  - Drug hypersensitivity [Unknown]
  - Abdominal pain upper [Unknown]
  - Visual impairment [Unknown]
  - Visual impairment [Unknown]
  - Erythema [Recovered/Resolved]
  - Pruritus [Not Recovered/Not Resolved]
  - Erythema [Not Recovered/Not Resolved]
  - Off label use [Unknown]
  - Drug administered at inappropriate site [Unknown]
